FAERS Safety Report 4986502-8 (Version None)
Quarter: 2006Q2

REPORT INFORMATION
  Report Type: 
  Country: None (occurrence: None)
  Receive Date: 20060424
  Receipt Date: 20060413
  Transmission Date: 20061013
  Serious: Yes (Other)
  Sender: FDA-Public Use
  Company Number: 2006-00906

PATIENT
  Sex: 0

DRUGS (1)
  1. VELCADE [Suspect]
     Indication: NON-HODGKIN'S LYMPHOMA
     Dosage: 1.50 MG/M2, UNK, IV BOLUS
     Route: 040

REACTIONS (2)
  - RASH [None]
  - VASCULITIS NECROTISING [None]
